FAERS Safety Report 6379664-1 (Version None)
Quarter: 2009Q3

REPORT INFORMATION
  Report Type: 
  Country: None (occurrence: None)
  Receive Date: 20090928
  Receipt Date: 20090922
  Transmission Date: 20100115
  Serious: Yes (Hospitalization, Other)
  Sender: FDA-Public Use
  Company Number: US-ROCHE-648873

PATIENT
  Sex: Female

DRUGS (4)
  1. VALIUM [Suspect]
     Route: 065
     Dates: start: 19690101
  2. VALIUM [Suspect]
     Dosage: AS NEEDED
     Route: 065
     Dates: start: 20090101
  3. DIAZEPAM [Suspect]
     Dosage: FORM: PILL
     Route: 060
  4. COUMADIN [Concomitant]

REACTIONS (9)
  - ATRIAL FIBRILLATION [None]
  - CONTUSION [None]
  - HAEMATOMA [None]
  - JOINT INJURY [None]
  - OSTEOARTHRITIS [None]
  - PANIC DISORDER [None]
  - SMALL INTESTINAL OBSTRUCTION [None]
  - SOMNOLENCE [None]
  - STRESS [None]
